FAERS Safety Report 11151229 (Version 3)
Quarter: 2015Q2

REPORT INFORMATION
  Report Type: Spontaneous
  Country: JP (occurrence: JP)
  Receive Date: 20150601
  Receipt Date: 20150618
  Transmission Date: 20150821
  Serious: Yes (Life-Threatening, Other)
  Sender: FDA-Public Use
  Company Number: JP-ABBVIE-15P-087-1400322-00

PATIENT
  Age: 77 Year
  Sex: Male

DRUGS (3)
  1. LEUPLIN SR FOR INJECTION KIT [Suspect]
     Active Substance: LEUPROLIDE ACETATE
     Indication: PROSTATE CANCER
     Route: 058
     Dates: start: 20140827, end: 20150218
  2. CASODEX [Suspect]
     Active Substance: BICALUTAMIDE
     Indication: PROSTATE CANCER
     Route: 048
     Dates: start: 20140723, end: 20150218
  3. LEUPLIN SR FOR INJECTION KIT [Suspect]
     Active Substance: LEUPROLIDE ACETATE
     Indication: PROSTATE CANCER
     Route: 058
     Dates: start: 20140730, end: 20140730

REACTIONS (2)
  - Cardio-respiratory arrest [Recovered/Resolved with Sequelae]
  - Ventricular fibrillation [Recovered/Resolved with Sequelae]

NARRATIVE: CASE EVENT DATE: 20150528
